FAERS Safety Report 9518782 (Version 1)
Quarter: 2013Q3

REPORT INFORMATION
  Report Type: Spontaneous
  Country: GB (occurrence: GB)
  Receive Date: 20130912
  Receipt Date: 20130912
  Transmission Date: 20140515
  Serious: Yes (Hospitalization)
  Sender: FDA-Public Use
  Company Number: GB-ASTRAZENECA-2013SE67310

PATIENT
  Age: 48 Year
  Sex: Male

DRUGS (3)
  1. SEROQUEL [Suspect]
     Indication: BIPOLAR DISORDER
     Route: 048
  2. OLANZAPINE [Concomitant]
  3. OMEPRAZOLE [Concomitant]

REACTIONS (1)
  - Cerebrovascular accident [Unknown]
